FAERS Safety Report 9912165 (Version 6)
Quarter: 2014Q2

REPORT INFORMATION
  Report Type: Report from Study
  Country: DE (occurrence: DE)
  Receive Date: 20140220
  Receipt Date: 20140423
  Transmission Date: 20141212
  Serious: Yes (Hospitalization)
  Sender: FDA-Public Use
  Company Number: DE-BRISTOL-MYERS SQUIBB COMPANY-20214037

PATIENT
  Age: 63 Year
  Sex: Male
  Weight: 78 kg

DRUGS (8)
  1. ERBITUX SOLN FOR INF [Suspect]
     Indication: COLON CANCER METASTATIC
     Dosage: 2 DOSE ON 17JAN14.INTERRUPTED ON 29JAN14 . RESTARTED ON 07FEB14,STOPPED:14FEB,21FEB,28FEB14
     Route: 042
     Dates: start: 20140103
  2. FLUOROURACIL [Concomitant]
     Indication: COLORECTAL CANCER METASTATIC
     Route: 042
     Dates: start: 20140103, end: 20140310
  3. OXALIPLATIN [Concomitant]
     Indication: COLORECTAL CANCER METASTATIC
     Route: 042
     Dates: start: 20140103, end: 20140310
  4. CALCIUM FOLINATE [Concomitant]
     Indication: COLORECTAL CANCER METASTATIC
     Route: 042
     Dates: start: 20140103, end: 20140310
  5. TAVANIC [Concomitant]
     Indication: BRONCHOPNEUMONIA
     Dates: start: 20140128
  6. UREA [Concomitant]
     Indication: DERMATITIS ACNEIFORM
     Dosage: OINTMENT
     Route: 061
     Dates: start: 20140129, end: 20140310
  7. LEVOFLOXACIN [Concomitant]
     Indication: DERMATITIS ACNEIFORM
     Dosage: OINTMENT
     Route: 061
  8. PHYTOMENADIONE [Concomitant]
     Indication: DERMATITIS ACNEIFORM

REACTIONS (6)
  - Bronchopneumonia [Recovered/Resolved]
  - Anaemia [Recovered/Resolved]
  - Gamma-glutamyltransferase increased [Recovered/Resolved]
  - Presyncope [Recovered/Resolved]
  - Cholangitis [Recovered/Resolved]
  - Sinusitis [Recovered/Resolved]
